FAERS Safety Report 11928014 (Version 2)
Quarter: 2016Q1

REPORT INFORMATION
  Report Type: Spontaneous
  Country: CH (occurrence: CH)
  Receive Date: 20160119
  Receipt Date: 20160310
  Transmission Date: 20160526
  Serious: Yes (Hospitalization, Other)
  Sender: FDA-Public Use
  Company Number: CH-009507513-1601CHE005118

PATIENT
  Age: 7 Year
  Sex: Male

DRUGS (22)
  1. METHOTREXAAT PCH [Suspect]
     Active Substance: METHOTREXATE
  2. NOPIL [Suspect]
     Active Substance: SULFAMETHOXAZOLE\TRIMETHOPRIM
     Dosage: UNK
     Route: 042
     Dates: start: 20150508, end: 20150510
  3. TARGOCID [Suspect]
     Active Substance: TEICOPLANIN
  4. FENTANYL. [Concomitant]
     Active Substance: FENTANYL
     Dosage: UNK
     Dates: start: 20150405, end: 201506
  5. ATARAX [Concomitant]
     Active Substance: HYDROXYZINE\HYDROXYZINE HYDROCHLORIDE
  6. OMEPRAZOLE. [Suspect]
     Active Substance: OMEPRAZOLE
  7. EMEND [Suspect]
     Active Substance: APREPITANT
     Route: 048
  8. UROMITEXAN [Concomitant]
     Active Substance: MESNA
  9. NOVALGIN (DIPYRONE) [Suspect]
     Active Substance: DIPYRONE
  10. LASIX [Suspect]
     Active Substance: FUROSEMIDE
  11. NOPIL [Suspect]
     Active Substance: SULFAMETHOXAZOLE\TRIMETHOPRIM
     Dosage: UNK
     Dates: start: 20150424, end: 20150426
  12. MEROPENEM. [Suspect]
     Active Substance: MEROPENEM
  13. ENDOXAN [Suspect]
     Active Substance: CYCLOPHOSPHAMIDE
  14. DOXORUBICIN [Concomitant]
     Active Substance: DOXORUBICIN
  15. ZOLOFT [Concomitant]
     Active Substance: SERTRALINE HYDROCHLORIDE
  16. NOPIL [Suspect]
     Active Substance: SULFAMETHOXAZOLE\TRIMETHOPRIM
     Dosage: UNK
     Dates: start: 20150417, end: 20150419
  17. KETAMINE [Concomitant]
     Active Substance: KETAMINE
  18. TAVEGYL [Concomitant]
     Active Substance: CLEMASTINE FUMARATE
  19. NOPIL [Suspect]
     Active Substance: SULFAMETHOXAZOLE\TRIMETHOPRIM
     Dosage: UNK
     Dates: start: 20150502, end: 20150503
  20. ZOFRAN [Suspect]
     Active Substance: ONDANSETRON HYDROCHLORIDE
  21. AMPHO MORONAL [Suspect]
     Active Substance: AMPHOTERICIN B
  22. BUSCOPAN [Concomitant]
     Active Substance: BUTYLSCOPOLAMINE BROMIDE

REACTIONS (1)
  - Toxic epidermal necrolysis [Recovered/Resolved]

NARRATIVE: CASE EVENT DATE: 20150512
